FAERS Safety Report 7924285-X (Version None)
Quarter: 2011Q4

REPORT INFORMATION
  Report Type: 
  Country: None (occurrence: None)
  Receive Date: 20111117
  Receipt Date: 20110321
  Transmission Date: 20120403
  Serious: No
  Sender: FDA-Public Use
  Company Number: US-AMGEN-USASP2011015189

PATIENT
  Age: 20 Year
  Sex: Female
  Weight: 52.154 kg

DRUGS (6)
  1. METHOTREXATE [Concomitant]
     Dosage: 2.5 MG, UNK
  2. OMEPRAZOLE [Concomitant]
     Dosage: 20 MG, UNK
  3. ENBREL [Suspect]
     Indication: PRODUCT USED FOR UNKNOWN INDICATION
     Dosage: 50 MG, QWK
  4. PLAQUENIL [Concomitant]
     Dosage: 200 MG, UNK
  5. PREDNISONE TAB [Concomitant]
     Dosage: 1 MG, UNK
  6. NORTRIPTYLINE HYDROCHLORIDE [Concomitant]
     Dosage: 25 MG, UNK

REACTIONS (3)
  - INJECTION SITE ERYTHEMA [None]
  - INJECTION SITE SWELLING [None]
  - INJECTION SITE PRURITUS [None]
